FAERS Safety Report 4656437-9 (Version None)
Quarter: 2005Q2

REPORT INFORMATION
  Report Type: 
  Country: None (occurrence: None)
  Receive Date: 20050504
  Receipt Date: 20050422
  Transmission Date: 20051028
  Serious: Yes (Hospitalization, Disabling)
  Sender: FDA-Public Use
  Company Number: 2005AP01987

PATIENT
  Age: 57 Year
  Sex: Female

DRUGS (9)
  1. IRESSA [Suspect]
     Indication: LUNG NEOPLASM MALIGNANT
     Dosage: 250 MG DAILY PO
     Route: 048
     Dates: start: 20031110, end: 20040724
  2. IRESSA [Suspect]
     Indication: LUNG NEOPLASM MALIGNANT
     Dosage: 250 MG DAILY PO
     Route: 048
     Dates: start: 20041024, end: 20050329
  3. PARIET [Concomitant]
  4. ALFAROL [Concomitant]
  5. BENET [Concomitant]
  6. LAMISIL [Concomitant]
  7. MAGNESIUM OXIDE [Concomitant]
  8. TULOBUTEROL [Concomitant]
  9. RADIOTHERAPY [Concomitant]

REACTIONS (8)
  - ARTERIAL OCCLUSIVE DISEASE [None]
  - DEEP VEIN THROMBOSIS [None]
  - DISSEMINATED INTRAVASCULAR COAGULATION [None]
  - INTERNATIONAL NORMALISED RATIO INCREASED [None]
  - PALLOR [None]
  - SKIN DISCOLOURATION [None]
  - TUMOUR EMBOLISM [None]
  - VASCULITIS [None]
